FAERS Safety Report 23154936 (Version 1)
Quarter: 2023Q4

REPORT INFORMATION
  Report Type: Spontaneous
  Country: US (occurrence: US)
  Receive Date: 20231107
  Receipt Date: 20231107
  Transmission Date: 20240110
  Serious: Yes (Other)
  Sender: FDA-Public Use
  Company Number: US-GILEAD-2023-0650124

PATIENT
  Age: 63 Year
  Sex: Male

DRUGS (1)
  1. LENACAPAVIR [Suspect]
     Active Substance: LENACAPAVIR
     Indication: HIV infection
     Dosage: 927 MG EVERY 6 MONTHS
     Route: 058
     Dates: start: 202309

REACTIONS (5)
  - Neoplasm malignant [Not Recovered/Not Resolved]
  - Injection site infection [Recovering/Resolving]
  - Staphylococcal infection [Recovering/Resolving]
  - Dizziness [Not Recovered/Not Resolved]
  - Nausea [Not Recovered/Not Resolved]
